FAERS Safety Report 9664877 (Version 2)
Quarter: 2013Q4

REPORT INFORMATION
  Report Type: Spontaneous
  Country: US (occurrence: US)
  Receive Date: 20131101
  Receipt Date: 20131115
  Transmission Date: 20140711
  Serious: No
  Sender: FDA-Public Use
  Company Number: US-009507513-1310USA015278

PATIENT
  Age: 81 Year
  Sex: Female
  Weight: 90.7 kg

DRUGS (11)
  1. OXYTROL FOR WOMEN [Suspect]
     Indication: INCONTINENCE
     Dosage: 1 DF, Q4D
     Route: 062
     Dates: start: 20130925, end: 20131007
  2. ATENOLOL [Concomitant]
     Indication: HYPERTENSION
     Dosage: UNK, UNKNOWN
  3. LISINOPRIL [Concomitant]
     Indication: HYPERTENSION
     Dosage: UNK, UNKNOWN
  4. NORVASK [Concomitant]
     Indication: HYPERTENSION
     Dosage: UNK, UNKNOWN
  5. LEVOXYL [Concomitant]
     Indication: HYPOTHYROIDISM
     Dosage: UNK, UNKNOWN
  6. DORZOPT (DORZOLAMIDE HYDROCHLORIDE (+) TIMOLOL MALEATE) [Concomitant]
     Indication: GLAUCOMA
     Dosage: UNK, UNKNOWN
  7. ASPIRIN [Concomitant]
     Indication: PRODUCT USED FOR UNKNOWN INDICATION
     Dosage: UNK, UNKNOWN
  8. CALCIUM CITRATE [Concomitant]
     Indication: PRODUCT USED FOR UNKNOWN INDICATION
     Dosage: UNK, UNKNOWN
  9. CRANBERRY [Concomitant]
     Indication: PRODUCT USED FOR UNKNOWN INDICATION
     Dosage: UNK, UNKNOWN
  10. OMEGA-3 MARINE TRIGLYCERIDES [Concomitant]
     Indication: PRODUCT USED FOR UNKNOWN INDICATION
     Dosage: UNK, UNKNOWN
  11. MINERALS (UNSPECIFIED) (+) VITAMINS (UNSPECIFIED) [Concomitant]
     Indication: PRODUCT USED FOR UNKNOWN INDICATION
     Dosage: UNK, UNKNOWN

REACTIONS (2)
  - Drug ineffective [Unknown]
  - Product packaging issue [Unknown]
